FAERS Safety Report 16901906 (Version 1)
Quarter: 2019Q4

REPORT INFORMATION
  Report Type: Report from Study
  Country: None (occurrence: SI)
  Receive Date: 20191010
  Receipt Date: 20191010
  Transmission Date: 20200122
  Serious: Yes (Hospitalization)
  Sender: FDA-Public Use
  Company Number: SI-ABBVIE-19K-261-2953620-00

PATIENT
  Age: 84 Year
  Sex: Male

DRUGS (1)
  1. DUODOPA [Suspect]
     Active Substance: CARBIDOPA\LEVODOPA
     Indication: PARKINSON^S DISEASE
     Route: 050
     Dates: start: 201101

REACTIONS (3)
  - Weight decreased [Unknown]
  - Asthenia [Unknown]
  - Salmonellosis [Recovered/Resolved]

NARRATIVE: CASE EVENT DATE: 20190909
